FAERS Safety Report 12096411 (Version 3)
Quarter: 2016Q2

REPORT INFORMATION
  Report Type: Spontaneous
  Country: JP (occurrence: JP)
  Receive Date: 20160220
  Receipt Date: 20160407
  Transmission Date: 20160815
  Serious: Yes (Other)
  Sender: FDA-Public Use
  Company Number: JP-ELI_LILLY_AND_COMPANY-JP201602005730

PATIENT
  Age: 46 Year
  Sex: Female

DRUGS (10)
  1. CELECOX [Concomitant]
     Active Substance: CELECOXIB
     Indication: SAPHO SYNDROME
     Dosage: 200 MG, QD
     Route: 048
     Dates: start: 20150811
  2. PREDONINE [Concomitant]
     Active Substance: PREDNISOLONE\PREDNISOLONE ACETATE\PREDNISOLONE SODIUM SUCCINATE
     Indication: SAPHO SYNDROME
     Dosage: UNK
     Route: 048
     Dates: start: 20150811
  3. LYRICA [Concomitant]
     Active Substance: PREGABALIN
     Dosage: UNK
     Route: 048
     Dates: start: 20160114
  4. CYMBALTA [Suspect]
     Active Substance: DULOXETINE HYDROCHLORIDE
     Dosage: 40 MG, EACH MORNING
     Route: 048
     Dates: start: 20150930, end: 20151124
  5. ENDOXAN                            /00021101/ [Concomitant]
     Active Substance: CYCLOPHOSPHAMIDE
     Indication: SAPHO SYNDROME
     Dosage: 50 MG, 3/W
     Route: 048
  6. LYRICA [Concomitant]
     Active Substance: PREGABALIN
     Indication: FIBROMYALGIA
     Dosage: UNK
     Route: 048
     Dates: start: 20151104, end: 20151215
  7. LYRICA [Concomitant]
     Active Substance: PREGABALIN
     Dosage: UNK
     Route: 048
     Dates: start: 20151216, end: 20160113
  8. CYMBALTA [Suspect]
     Active Substance: DULOXETINE HYDROCHLORIDE
     Indication: FIBROMYALGIA
     Dosage: 20 MG, EACH MORNING
     Route: 048
     Dates: start: 20150811, end: 20150929
  9. CARERAM [Concomitant]
     Active Substance: IGURATIMOD
     Indication: SAPHO SYNDROME
     Dosage: 25 MG, QD
     Route: 048
     Dates: start: 20151104
  10. THEO-DUR [Concomitant]
     Active Substance: THEOPHYLLINE ANHYDROUS
     Indication: ASTHMA
     Dosage: 100 MG, BID
     Route: 048
     Dates: end: 20151103

REACTIONS (5)
  - Intracranial pressure increased [Recovering/Resolving]
  - Dyspnoea [Unknown]
  - Thirst [Unknown]
  - Stomatitis [Unknown]
  - Cough [Unknown]

NARRATIVE: CASE EVENT DATE: 20151125
